FAERS Safety Report 13846570 (Version 4)
Quarter: 2019Q2

REPORT INFORMATION
  Report Type: Report from Study
  Country: CO (occurrence: CO)
  Receive Date: 20170808
  Receipt Date: 20190413
  Transmission Date: 20190711
  Serious: Yes (Life-Threatening, Hospitalization)
  Sender: FDA-Public Use
  Company Number: PHHY2017CO114925

PATIENT
  Age: 32 Year
  Sex: Male
  Weight: 56 kg

DRUGS (2)
  1. REVOLADE [Suspect]
     Active Substance: ELTROMBOPAG
     Indication: IMMUNE THROMBOCYTOPENIC PURPURA
     Dosage: 50 MG, QD
     Route: 048
     Dates: start: 20160822, end: 201610
  2. REVOLADE [Suspect]
     Active Substance: ELTROMBOPAG
     Dosage: 50 MG, QD
     Route: 048
     Dates: end: 201902

REACTIONS (8)
  - Platelet count decreased [Recovering/Resolving]
  - Diabetes mellitus [Unknown]
  - Anxiety [Unknown]
  - Asthenia [Unknown]
  - Malaise [Unknown]
  - Blood glucose increased [Unknown]
  - Gingival bleeding [Unknown]
  - Blood glucose abnormal [Unknown]

NARRATIVE: CASE EVENT DATE: 20170815
